FAERS Safety Report 21455898 (Version 2)
Quarter: 2022Q4

REPORT INFORMATION
  Report Type: Spontaneous
  Country: US (occurrence: US)
  Receive Date: 20221014
  Receipt Date: 20221108
  Transmission Date: 20230113
  Serious: Yes (Other)
  Sender: FDA-Public Use
  Company Number: US-NOVARTISTESTPH-NVSC2022US224306

PATIENT
  Sex: Female

DRUGS (1)
  1. DUREZOL [Suspect]
     Active Substance: DIFLUPREDNATE
     Indication: Eye disorder
     Dosage: UNK
     Route: 065

REACTIONS (5)
  - Uveitis [Unknown]
  - Crying [Unknown]
  - Fear [Unknown]
  - Intraocular pressure increased [Unknown]
  - Product availability issue [Unknown]
